FAERS Safety Report 8900301 (Version 2)
Quarter: 2012Q4

REPORT INFORMATION
  Report Type: 
  Country: IT (occurrence: IT)
  Receive Date: 20121109
  Receipt Date: 20121116
  Transmission Date: 20130627
  Serious: Yes (Death, Hospitalization)
  Sender: FDA-Public Use
  Company Number: IT-GENZYME-POMP-1002520

PATIENT
  Age: 47 None
  Sex: Male

DRUGS (1)
  1. MYOZYME [Suspect]
     Indication: GLYCOGEN STORAGE DISEASE TYPE II
     Dosage: 2.5 mg/kg, q2w
     Route: 042
     Dates: start: 201010

REACTIONS (4)
  - Respiratory disorder [Fatal]
  - Therapeutic response decreased [Fatal]
  - Medication error [Fatal]
  - Obstructive airways disorder [Fatal]
